FAERS Safety Report 8723205 (Version 4)
Quarter: 2012Q4

REPORT INFORMATION
  Report Type: 
  Country: US (occurrence: US)
  Receive Date: 20120814
  Receipt Date: 20120830
  Transmission Date: 20130627
  Serious: Yes (Hospitalization, Other)
  Sender: FDA-Public Use
  Company Number: US-ASTRAZENECA-2012SE50365

PATIENT
  Age: 76 Year
  Sex: Female

DRUGS (1)
  1. SYMBICORT PMDI [Suspect]
     Dosage: UNKNOWN
     Route: 055

REACTIONS (12)
  - Pneumonia [Unknown]
  - Fall [Unknown]
  - Upper limb fracture [Unknown]
  - Full blood count decreased [Unknown]
  - Atrial fibrillation [Unknown]
  - Injury [Unknown]
  - Malaise [Unknown]
  - Memory impairment [Unknown]
  - Gait disturbance [Unknown]
  - Oedema peripheral [Unknown]
  - Musculoskeletal disorder [Unknown]
  - Intentional drug misuse [Unknown]
